FAERS Safety Report 7454431-6 (Version None)
Quarter: 2011Q1

REPORT INFORMATION
  Report Type: 
  Country: None (occurrence: None)
  Receive Date: 20110302
  Receipt Date: 20110114
  Transmission Date: 20110831
  Serious: No
  Sender: FDA-Public Use
  Company Number: 025514

PATIENT
  Sex: Female
  Weight: 52.6 kg

DRUGS (4)
  1. CIMZIA [Suspect]
     Indication: CROHN'S DISEASE
     Dosage: 400 MG 1X/MONTH SUBCUTANEOUS
     Route: 058
     Dates: start: 20080801
  2. PENTASA [Concomitant]
  3. FOSAMAX [Concomitant]
  4. AZATHIOPRINE [Concomitant]

REACTIONS (2)
  - PNEUMONIA [None]
  - HEADACHE [None]
